FAERS Safety Report 6981284-2 (Version None)
Quarter: 2010Q3

REPORT INFORMATION
  Report Type: 
  Country: None (occurrence: None)
  Receive Date: 20100914
  Receipt Date: 20100901
  Transmission Date: 20110219
  Serious: Yes (Hospitalization, Other)
  Sender: FDA-Public Use
  Company Number: BR-MEDIMMUNE-MEDI-0011505

PATIENT
  Sex: Male
  Weight: 9.3 kg

DRUGS (6)
  1. SYNAGIS [Suspect]
     Indication: BRONCHOPULMONARY DYSPLASIA
     Route: 030
     Dates: start: 20100329, end: 20100329
  2. SYNAGIS [Suspect]
  3. CLONAZEPAM [Concomitant]
     Indication: CONVULSION
     Dates: start: 20090401
  4. VALPROIC ACID [Concomitant]
     Indication: CONVULSION
  5. VITAMIN AD [Concomitant]
     Indication: VITAMIN SUPPLEMENTATION
     Dosage: 4 DROPS DAILY
     Dates: start: 20081201
  6. DOMPERIDONE [Concomitant]
     Dates: start: 20090201

REACTIONS (8)
  - ACUTE RESPIRATORY FAILURE [None]
  - ASPIRATION [None]
  - BRONCHIOLITIS [None]
  - INCREASED BRONCHIAL SECRETION [None]
  - PNEUMONIA [None]
  - PYREXIA [None]
  - RESPIRATORY SYNCYTIAL VIRUS INFECTION [None]
  - WHITE BLOOD CELL COUNT INCREASED [None]
